FAERS Safety Report 7387791-5 (Version None)
Quarter: 2011Q1

REPORT INFORMATION
  Report Type: 
  Country: None (occurrence: None)
  Receive Date: 20110331
  Receipt Date: 20110323
  Transmission Date: 20110831
  Serious: Yes (Hospitalization)
  Sender: FDA-Public Use
  Company Number: US-GILEAD-2011-0036862

PATIENT
  Sex: Female

DRUGS (10)
  1. REVATIO [Concomitant]
  2. TUSSIONEX [Concomitant]
  3. ASPIRIN [Concomitant]
  4. ATENOLOL [Concomitant]
  5. SIMVASTATIN [Concomitant]
  6. LETAIRIS [Suspect]
  7. STOOL SOFTENER CAPS [Concomitant]
  8. PLAVIX [Concomitant]
  9. FUROSEMIDE [Concomitant]
  10. FLUTICASONE PROPIONATE [Concomitant]

REACTIONS (1)
  - CARDIAC FAILURE CONGESTIVE [None]
